FAERS Safety Report 9379665 (Version 3)
Quarter: 2013Q3

REPORT INFORMATION
  Report Type: Spontaneous
  Country: US (occurrence: US)
  Receive Date: 20130702
  Receipt Date: 20130808
  Transmission Date: 20140515
  Serious: Yes (Hospitalization, Other)
  Sender: FDA-Public Use
  Company Number: US-BAXTER-2013BAX024471

PATIENT
  Age: 68 Year
  Sex: Female

DRUGS (2)
  1. DIANEAL LOW CALCIUM [Suspect]
     Indication: PERITONEAL DIALYSIS
     Route: 033
     Dates: start: 20130610, end: 20130723
  2. DIANEAL LOW CALCIUM [Suspect]
     Indication: PERITONEAL DIALYSIS
     Route: 033
     Dates: start: 20130610, end: 20130723

REACTIONS (5)
  - Gastrointestinal infection [Not Recovered/Not Resolved]
  - Sepsis [Not Recovered/Not Resolved]
  - Convulsion [Not Recovered/Not Resolved]
  - Coma [Not Recovered/Not Resolved]
  - Peritonitis [Not Recovered/Not Resolved]
